FAERS Safety Report 9769875 (Version 1)
Quarter: 2013Q4

REPORT INFORMATION
  Report Type: Spontaneous
  Country: US (occurrence: US)
  Receive Date: 20131218
  Receipt Date: 20131218
  Transmission Date: 20140711
  Serious: No
  Sender: FDA-Public Use
  Company Number: US-VERTEX PHARMACEUTICALS INC-AE-2011-000727

PATIENT
  Sex: Male

DRUGS (3)
  1. INCIVEK [Suspect]
     Indication: HEPATITIS C
     Route: 048
     Dates: start: 20110729
  2. PEG [Concomitant]
     Indication: HEPATITIS C
  3. RIBA [Concomitant]
     Indication: HEPATITIS C

REACTIONS (2)
  - Proctalgia [Unknown]
  - Anorectal discomfort [Unknown]
